FAERS Safety Report 7678550-4 (Version None)
Quarter: 2011Q3

REPORT INFORMATION
  Report Type: 
  Country: None (occurrence: None)
  Receive Date: 20110811
  Receipt Date: 20110803
  Transmission Date: 20111222
  Serious: Yes (Hospitalization, Other)
  Sender: FDA-Public Use
  Company Number: US-BAYER-2011-021283

PATIENT
  Age: 23 Year
  Sex: Female
  Weight: 52.154 kg

DRUGS (4)
  1. MINOCYCLINE HCL [Concomitant]
     Dosage: UNK
     Dates: start: 20000101, end: 20040101
  2. NSAID'S [Concomitant]
  3. CLARITIN [Concomitant]
     Dosage: UNK UNK, QD
  4. YASMIN [Suspect]
     Indication: CONTRACEPTION
     Dosage: UNK
     Dates: start: 20000101, end: 20040101

REACTIONS (2)
  - GALLBLADDER DISORDER [None]
  - INJURY [None]
